FAERS Safety Report 4848999-3 (Version None)
Quarter: 2005Q4

REPORT INFORMATION
  Report Type: 
  Country: None (occurrence: None)
  Receive Date: 20051122
  Receipt Date: 20050827
  Transmission Date: 20060501
  Serious: Yes (Other)
  Sender: FDA-Public Use
  Company Number: US-JNJFOC-20050806851

PATIENT
  Age: 48 Year
  Sex: Male

DRUGS (1)
  1. RISPERDAL [Suspect]
     Dosage: 37.5 MG, INTRAMUSCULAR
     Route: 030
     Dates: start: 20050827

REACTIONS (1)
  - SWOLLEN TONGUE [None]
